FAERS Safety Report 8015997-0 (Version None)
Quarter: 2011Q4

REPORT INFORMATION
  Report Type: 
  Country: None (occurrence: None)
  Receive Date: 20111230
  Receipt Date: 20111230
  Transmission Date: 20120403
  Serious: Yes (Hospitalization)
  Sender: FDA-Public Use
  Company Number: None

PATIENT
  Age: 81 Year
  Sex: Male
  Weight: 77.11 kg

DRUGS (1)
  1. DABIGATRAN [Suspect]

REACTIONS (1)
  - EMBOLIC STROKE [None]
